FAERS Safety Report 21169810 (Version 1)
Quarter: 2022Q3

REPORT INFORMATION
  Report Type: Report from Study
  Country: JP (occurrence: JP)
  Receive Date: 20220804
  Receipt Date: 20220804
  Transmission Date: 20221027
  Serious: Yes (Death)
  Sender: FDA-Public Use
  Company Number: JP-BAYER-2019-068511

PATIENT
  Sex: Female

DRUGS (19)
  1. VENTAVIS [Suspect]
     Active Substance: ILOPROST
     Indication: Pulmonary arterial hypertension
     Dosage: 5 UG, 6ID
     Route: 055
     Dates: start: 20180528, end: 20181207
  2. VENTAVIS [Suspect]
     Active Substance: ILOPROST
     Indication: Systemic lupus erythematosus
     Route: 055
  3. REBAMIPIDE [Concomitant]
     Active Substance: REBAMIPIDE
     Indication: Prophylaxis
     Route: 048
  4. REVATIO [Concomitant]
     Active Substance: SILDENAFIL CITRATE
     Route: 048
  5. ENALAPRIL [Concomitant]
     Active Substance: ENALAPRIL
     Route: 048
  6. DIGOXIN [Concomitant]
     Active Substance: DIGOXIN
     Route: 048
  7. PREDONINE [Concomitant]
     Active Substance: PREDNISOLONE
     Route: 048
  8. ROSUVASTATIN [Concomitant]
     Active Substance: ROSUVASTATIN
     Route: 048
  9. BERAPROST SODIUM [Concomitant]
     Active Substance: BERAPROST SODIUM
     Route: 048
  10. PROGRAF [Concomitant]
     Active Substance: TACROLIMUS
     Route: 048
  11. AMBRISENTAN [Concomitant]
     Active Substance: AMBRISENTAN
     Route: 048
  12. ALOSENN [ACHILLEA MILLEFOLIUM;RUBIA TINCTORUM ROOT TINCTURE;SENNA [Concomitant]
     Route: 048
  13. RABEPRAZOLE SODIUM [Concomitant]
     Active Substance: RABEPRAZOLE SODIUM
     Indication: Prophylaxis
     Route: 048
  14. ALENDRONATE [Concomitant]
     Active Substance: ALENDRONATE SODIUM
     Route: 048
  15. FEBUXOSTAT [Concomitant]
     Active Substance: FEBUXOSTAT
     Route: 048
  16. CILNIDIPINE [Concomitant]
     Active Substance: CILNIDIPINE
     Route: 048
  17. FUROSEMIDE [Concomitant]
     Active Substance: FUROSEMIDE
     Route: 048
  18. OXYGEN [Concomitant]
     Active Substance: OXYGEN
     Indication: Pulmonary arterial hypertension
     Dosage: UNK
     Dates: end: 20181208
  19. OXYGEN [Concomitant]
     Active Substance: OXYGEN
     Indication: Systemic lupus erythematosus

REACTIONS (1)
  - Cardiac failure [Fatal]
